FAERS Safety Report 7879149-7 (Version None)
Quarter: 2011Q4

REPORT INFORMATION
  Report Type: 
  Country: None (occurrence: None)
  Receive Date: 20111101
  Receipt Date: 20111019
  Transmission Date: 20120403
  Serious: Yes (Hospitalization, Other)
  Sender: FDA-Public Use
  Company Number: US-BAYER-2011-015099

PATIENT
  Age: 42 Year
  Sex: Female
  Weight: 63.492 kg

DRUGS (4)
  1. YASMIN [Suspect]
     Indication: PRODUCT USED FOR UNKNOWN INDICATION
     Dosage: UNK
     Route: 048
     Dates: start: 20040101, end: 20040411
  2. ASPIRIN [Concomitant]
     Dosage: UNK
     Dates: start: 20040401
  3. PLAVIX [Concomitant]
     Dosage: UNK
     Dates: start: 20040401
  4. PRAVACHOL [Concomitant]
     Dosage: UNK
     Dates: start: 20040401

REACTIONS (7)
  - CEREBROVASCULAR ACCIDENT [None]
  - ANXIETY [None]
  - MENTAL DISORDER [None]
  - CEREBRAL INFARCTION [None]
  - PAIN [None]
  - INJURY [None]
  - EMOTIONAL DISTRESS [None]
